FAERS Safety Report 13271646 (Version 1)
Quarter: 2017Q1

REPORT INFORMATION
  Report Type: Spontaneous
  Country: CA (occurrence: CA)
  Receive Date: 20170227
  Receipt Date: 20170227
  Transmission Date: 20170428
  Serious: Yes (Disabling, Other)
  Sender: FDA-Public Use
  Company Number: CA-TEVA-742908ACC

PATIENT
  Age: 60 Year
  Sex: Male
  Weight: 85 kg

DRUGS (5)
  1. CLONIDINE. [Concomitant]
     Active Substance: CLONIDINE
  2. PREGABALIN. [Suspect]
     Active Substance: PREGABALIN
     Indication: NEURALGIA
     Route: 048
  3. PREGABALIN. [Suspect]
     Active Substance: PREGABALIN
     Indication: FRACTURE
  4. TOPIRAMATE. [Suspect]
     Active Substance: TOPIRAMATE
     Indication: PAIN MANAGEMENT
     Route: 048
  5. OXYNEO [Concomitant]
     Active Substance: OXYCODONE

REACTIONS (17)
  - Malaise [Recovering/Resolving]
  - Hyperhidrosis [Recovering/Resolving]
  - Pruritus [Recovering/Resolving]
  - Decreased appetite [Recovering/Resolving]
  - Mood altered [Recovering/Resolving]
  - Diarrhoea [Recovering/Resolving]
  - Chills [Recovering/Resolving]
  - Nausea [Recovering/Resolving]
  - Activities of daily living impaired [Recovering/Resolving]
  - Constipation [Recovering/Resolving]
  - Feeling of despair [Recovering/Resolving]
  - Insomnia [Recovering/Resolving]
  - Depressed mood [Recovering/Resolving]
  - Exercise tolerance decreased [Recovering/Resolving]
  - Feeling of body temperature change [Recovering/Resolving]
  - Suicidal ideation [Recovering/Resolving]
  - Weight decreased [Recovering/Resolving]
